FAERS Safety Report 8831482 (Version 2)
Quarter: 2012Q4

REPORT INFORMATION
  Report Type: 
  Country: US (occurrence: US)
  Receive Date: 20121009
  Receipt Date: 20121113
  Transmission Date: 20130627
  Serious: Yes (Life-Threatening, Hospitalization, Other)
  Sender: FDA-Public Use
  Company Number: US-GENZYME-CLOF-1002345

PATIENT
  Age: 14 Year
  Sex: Male
  Weight: 76.5 kg

DRUGS (9)
  1. CLOLAR [Suspect]
     Indication: LYMPHOCYTIC LEUKAEMIA
     Dosage: 30 mg/m2, UNK (day 29-33)
     Route: 042
     Dates: start: 20120725, end: 20120904
  2. CYCLOPHOSPHAMIDE [Suspect]
     Indication: LYMPHOCYTIC LEUKAEMIA
     Dosage: 1000 mg/m2, UNK (day1)
     Route: 042
     Dates: start: 20120725
  3. CYCLOPHOSPHAMIDE [Suspect]
     Dosage: 440 mg/m2, UNK (day 29-33)
     Route: 042
     Dates: end: 20120904
  4. ARA-C [Suspect]
     Indication: LYMPHOCYTIC LEUKAEMIA
     Dosage: 75 mg/m2, UNK (day 1 to 4 and 8 to 11)
     Route: 042
     Dates: start: 20120725, end: 20120803
  5. ETOPOSIDE [Suspect]
     Indication: LYMPHOCYTIC LEUKAEMIA
     Dosage: 100 mg/m2, UNK (Day 29-33)
     Route: 042
     Dates: start: 20120725, end: 20120904
  6. MERCAPTOPURINE [Suspect]
     Indication: LYMPHOCYTIC LEUKAEMIA
     Dosage: 60 mg/m2, UNK (day 1-14)
     Route: 065
     Dates: start: 20120725, end: 20120806
  7. METHOTREXATE [Suspect]
     Indication: LYMPHOCYTIC LEUKAEMIA
     Dosage: 15 mg, UNK (day 1,8,15,22)
     Route: 037
     Dates: start: 20120725, end: 20120814
  8. VINCRISTINE SULFATE [Suspect]
     Indication: LYMPHOCYTIC LEUKAEMIA
     Dosage: 1.5 mg/m2, UNK (Day 15, 22, 43, 50)
     Route: 042
     Dates: start: 20120725, end: 20121006
  9. PEG-ASPARAGINASE [Suspect]
     Indication: LYMPHOCYTIC LEUKAEMIA
     Dosage: 2500 iu/m2, UNK (day 15 and 43)
     Route: 042
     Dates: start: 20120725, end: 20120929

REACTIONS (11)
  - Lung neoplasm [Unknown]
  - Platelet count decreased [Not Recovered/Not Resolved]
  - Neutrophil count decreased [Recovered/Resolved]
  - White blood cell count decreased [Unknown]
  - Sepsis [Recovered/Resolved]
  - Pneumonia [Unknown]
  - Pancreatitis [Recovered/Resolved]
  - Anaemia [Not Recovered/Not Resolved]
  - Diarrhoea [Recovered/Resolved]
  - Pyrexia [Unknown]
  - Pyrexia [Recovered/Resolved]
